FAERS Safety Report 6264551-X (Version None)
Quarter: 2009Q3

REPORT INFORMATION
  Report Type: 
  Country: None (occurrence: None)
  Receive Date: 20090710
  Receipt Date: 20090703
  Transmission Date: 20100115
  Serious: Yes (Other)
  Sender: FDA-Public Use
  Company Number: GB-AVENTIS-200916614GDDC

PATIENT
  Sex: Female

DRUGS (5)
  1. TAXOTERE [Suspect]
     Route: 041
     Dates: start: 20090601
  2. FLUOROURACIL [Concomitant]
  3. ADRIAMYCIN PFS [Concomitant]
  4. CYCLOPHOSPHAMIDE [Concomitant]
  5. HERCEPTIN [Concomitant]

REACTIONS (1)
  - ENCEPHALOPATHY [None]
